FAERS Safety Report 5954488-5 (Version None)
Quarter: 2008Q4

REPORT INFORMATION
  Report Type: 
  Country: None (occurrence: None)
  Receive Date: 20081117
  Receipt Date: 20080721
  Transmission Date: 20090506
  Serious: No
  Sender: FDA-Public Use
  Company Number: US-ABBOTT-08P-163-0465077-00

PATIENT
  Sex: Male
  Weight: 99.88 kg

DRUGS (2)
  1. TARKA [Suspect]
     Indication: HYPERTENSION
     Dosage: 2/245MG
     Route: 048
     Dates: start: 20060101, end: 20080718
  2. HYDROCODONE [Concomitant]
     Indication: PAIN
     Dosage: 10/650 MG
     Route: 048
     Dates: start: 19990101

REACTIONS (1)
  - HEPATIC ENZYME INCREASED [None]
